FAERS Safety Report 5795574-2 (Version None)
Quarter: 2008Q2

REPORT INFORMATION
  Report Type: 
  Country: None (occurrence: None)
  Receive Date: 20080630
  Receipt Date: 20080619
  Transmission Date: 20081010
  Serious: Yes (Hospitalization)
  Sender: FDA-Public Use
  Company Number: US-PFIZER INC-2008051443

PATIENT
  Age: 63 Year
  Sex: Female

DRUGS (1)
  1. SUTENT [Suspect]
     Indication: ENDOMETRIAL CANCER
     Route: 048
     Dates: start: 20080225, end: 20080504

REACTIONS (5)
  - GASTROINTESTINAL FISTULA [None]
  - HYPOKALAEMIA [None]
  - PELVIC ABSCESS [None]
  - SMALL INTESTINAL OBSTRUCTION [None]
  - TUMOUR NECROSIS [None]
